FAERS Safety Report 19990132 (Version 1)
Quarter: 2021Q4

REPORT INFORMATION
  Report Type: Spontaneous
  Country: US (occurrence: US)
  Receive Date: 20211022
  Receipt Date: 20211022
  Transmission Date: 20220303
  Serious: No
  Sender: FDA-Public Use
  Company Number: None

PATIENT
  Age: 57 Year
  Sex: Female
  Weight: 51.75 kg

DRUGS (1)
  1. EVENITY [Suspect]
     Active Substance: ROMOSOZUMAB-AQQG
     Indication: Osteoporosis

REACTIONS (7)
  - Fatigue [None]
  - Nausea [None]
  - Arthralgia [None]
  - Post procedural complication [None]
  - Malaise [None]
  - Liver function test increased [None]
  - Adverse drug reaction [None]

NARRATIVE: CASE EVENT DATE: 20210217
